FAERS Safety Report 5221233-0 (Version None)
Quarter: 2007Q1

REPORT INFORMATION
  Report Type: 
  Country: None (occurrence: None)
  Receive Date: 20070126
  Receipt Date: 20070112
  Transmission Date: 20070707
  Serious: Yes (Other)
  Sender: FDA-Public Use
  Company Number: US-PFIZER INC-2006134873

PATIENT
  Sex: Male
  Weight: 88.5 kg

DRUGS (6)
  1. CHANTIX [Suspect]
     Indication: SMOKING CESSATION THERAPY
  2. KALETRA [Concomitant]
  3. EPIVIR [Concomitant]
  4. VIREAD [Concomitant]
  5. ANDROGEL [Concomitant]
  6. DIAZEPAM [Concomitant]

REACTIONS (1)
  - DISORIENTATION [None]
